FAERS Safety Report 6915488-1 (Version None)
Quarter: 2010Q3

REPORT INFORMATION
  Report Type: 
  Country: None (occurrence: None)
  Receive Date: 20100806
  Receipt Date: 20100806
  Transmission Date: 20110219
  Serious: Yes (Other)
  Sender: FDA-Public Use
  Company Number: None

PATIENT
  Age: 75 Year
  Sex: Male
  Weight: 95.3 kg

DRUGS (1)
  1. ALBUTEROL SULFATE AND IPRATROPIUM BROMIDE [Suspect]
     Dosage: 1 PUFF(S) QID INHAL
     Route: 055
     Dates: start: 20100507, end: 20100707

REACTIONS (4)
  - DIZZINESS [None]
  - DYSPNOEA [None]
  - PALPITATIONS [None]
  - TACHYCARDIA [None]
